FAERS Safety Report 5422306-X (Version None)
Quarter: 2007Q3

REPORT INFORMATION
  Report Type: 
  Country: None (occurrence: None)
  Receive Date: 20070820
  Receipt Date: 20070820
  Transmission Date: 20080115
  Serious: Yes (Life-Threatening, Disabling)
  Sender: FDA-Public Use
  Company Number: None

PATIENT
  Age: 45 Year
  Sex: Male
  Weight: 81.6475 kg

DRUGS (4)
  1. ZITHROMAX [Suspect]
     Indication: RESPIRATORY TRACT INFECTION
     Dosage: 500MG 1X/DAY FOR 5 DAYS PO
     Route: 048
     Dates: start: 20070425, end: 20070501
  2. PARIET PROTON PUMP [Concomitant]
  3. ASPIRIN [Concomitant]
  4. CENTRUM MULTI-VITAMIN [Concomitant]

REACTIONS (3)
  - EAR DISORDER [None]
  - EYE DISORDER [None]
  - NASAL DISORDER [None]
